FAERS Safety Report 5210534-8 (Version None)
Quarter: 2007Q1

REPORT INFORMATION
  Report Type: 
  Country: None (occurrence: None)
  Receive Date: 20070117
  Receipt Date: 20070104
  Transmission Date: 20070707
  Serious: Yes (Disabling)
  Sender: FDA-Public Use
  Company Number: 2007AP00178

PATIENT
  Age: 28269 Day
  Sex: Male
  Weight: 80 kg

DRUGS (6)
  1. NEXIUM [Suspect]
     Indication: OESOPHAGEAL DISORDER
     Route: 048
     Dates: start: 20060601
  2. TEGRETOL [Suspect]
  3. PLAVIX [Concomitant]
  4. FISH OIL NOS [Concomitant]
  5. LIPITOR [Concomitant]
  6. GLUCOSAMINE NOS [Concomitant]

REACTIONS (3)
  - BALANCE DISORDER [None]
  - DISTURBANCE IN ATTENTION [None]
  - FEELING ABNORMAL [None]
